FAERS Safety Report 7086802-4 (Version None)
Quarter: 2010Q4

REPORT INFORMATION
  Report Type: 
  Country: None (occurrence: None)
  Receive Date: 20101105
  Receipt Date: 20101022
  Transmission Date: 20110411
  Serious: Yes (Hospitalization, Other)
  Sender: FDA-Public Use
  Company Number: GB-GENENTECH-304924

PATIENT
  Age: 67 Year
  Sex: Female

DRUGS (4)
  1. RITUXIMAB [Suspect]
     Indication: RHEUMATOID ARTHRITIS
     Dosage: 375 MG/M2, X1
     Route: 065
     Dates: start: 20100723, end: 20100723
  2. LANSOPRAZOLE [Concomitant]
     Indication: PROPHYLAXIS
     Dosage: 30 MG, QD
     Route: 048
     Dates: start: 20100715
  3. CO-TRIMAZOLE [Concomitant]
     Indication: ANTIFUNGAL PROPHYLAXIS
     Dosage: 960 MG, 2/WEEK
     Route: 048
     Dates: start: 20100721
  4. PREDNISOLONE [Concomitant]
     Indication: LYMPHOMA
     Dosage: 30 MG, QD
     Route: 048
     Dates: start: 20100715, end: 20100801

REACTIONS (4)
  - CEREBROVASCULAR DISORDER [None]
  - CONFUSIONAL STATE [None]
  - PYREXIA [None]
  - THERAPEUTIC RESPONSE DECREASED [None]
